FAERS Safety Report 12252760 (Version 1)
Quarter: 2016Q2

REPORT INFORMATION
  Report Type: Spontaneous
  Country: DE (occurrence: DE)
  Receive Date: 20160411
  Receipt Date: 20160411
  Transmission Date: 20160815
  Serious: Yes (Other)
  Sender: FDA-Public Use
  Company Number: DE-DRREDDYS-GER/GER/16/0078558

PATIENT
  Age: 30 Year
  Sex: Female
  Weight: 72 kg

DRUGS (7)
  1. GYNVITAL GRAVIDA (NEM) [Concomitant]
     Indication: PROPHYLAXIS OF NEURAL TUBE DEFECT
     Route: 048
     Dates: start: 20141109, end: 20150721
  2. L-THYROX [Concomitant]
     Active Substance: LEVOTHYROXINE SODIUM
     Indication: HYPOTHYROIDISM
     Route: 048
  3. FSME-IMMUN [Concomitant]
     Indication: IMMUNISATION
     Route: 030
     Dates: start: 20150529, end: 20150611
  4. CYTOTEC [Concomitant]
     Active Substance: MISOPROSTOL
     Indication: LABOUR INDUCTION
     Route: 048
     Dates: start: 20150720, end: 20150720
  5. LAMOTRIGINE. [Suspect]
     Active Substance: LAMOTRIGINE
     Indication: BIPOLAR DISORDER
     Route: 048
     Dates: start: 20141109, end: 20150721
  6. VENLAFAXINE [Suspect]
     Active Substance: VENLAFAXINE HYDROCHLORIDE
     Indication: DEPRESSION
     Route: 048
     Dates: start: 20141109, end: 20150721
  7. CEFUROXIM [Concomitant]
     Active Substance: CEFUROXIME
     Indication: INFECTION PROPHYLAXIS
     Route: 048
     Dates: start: 20150720, end: 20150721

REACTIONS (2)
  - Exposure during pregnancy [Recovered/Resolved]
  - Premature rupture of membranes [Unknown]
